FAERS Safety Report 6112265-9 (Version None)
Quarter: 2009Q1

REPORT INFORMATION
  Report Type: 
  Country: None (occurrence: None)
  Receive Date: 20090310
  Receipt Date: 20090225
  Transmission Date: 20090719
  Serious: Yes (Death)
  Sender: FDA-Public Use
  Company Number: GXKR2009US02469

PATIENT

DRUGS (1)
  1. DIPHENHYDRAMINE [Suspect]

REACTIONS (1)
  - ACCIDENT [None]
